FAERS Safety Report 5234094-0 (Version None)
Quarter: 2007Q1

REPORT INFORMATION
  Report Type: 
  Country: None (occurrence: None)
  Receive Date: 20070208
  Receipt Date: 20070129
  Transmission Date: 20070707
  Serious: Yes (Death, Hospitalization)
  Sender: FDA-Public Use
  Company Number: GB-PFIZER INC-2007008208

PATIENT
  Age: 62 Year
  Sex: Female

DRUGS (3)
  1. CLINDAMYCIN HYDROCHLORIDE [Suspect]
     Indication: PUSTULAR PSORIASIS
  2. FUCIDINE CAP [Suspect]
     Indication: PUSTULAR PSORIASIS
  3. METHOTREXATE [Concomitant]
     Route: 042

REACTIONS (2)
  - HEPATITIS [None]
  - JAUNDICE [None]
